FAERS Safety Report 10159247 (Version 2)
Quarter: 2014Q2

REPORT INFORMATION
  Report Type: Report from Study
  Country: GB (occurrence: None)
  Receive Date: 20140506
  Receipt Date: 20140603
  Transmission Date: 20141212
  Serious: Yes (Other)
  Sender: FDA-Public Use
  Company Number: 2014-08597

PATIENT
  Age: 51 Year
  Sex: Female

DRUGS (4)
  1. ULIPRISTAL ACETATE [Suspect]
     Indication: UTERINE LEIOMYOMA
     Dates: start: 20130719, end: 20131011
  2. MIRENA [Suspect]
     Indication: DYSMENORRHOEA
     Dosage: OVER 24 HOURS
     Route: 015
     Dates: start: 20140221
  3. AMITRIPTYLLINE (AMIITRIPTYLINE HYDROCHLORIDE) [Concomitant]
  4. FLUOXETINE (FLUOXETINE) [Concomitant]

REACTIONS (1)
  - Endometrial cancer [None]
